FAERS Safety Report 15600459 (Version 1)
Quarter: 2018Q4

REPORT INFORMATION
  Report Type: Spontaneous
  Country: DE (occurrence: DE)
  Receive Date: 20181109
  Receipt Date: 20181109
  Transmission Date: 20190205
  Serious: Yes (Congenital Anomaly, Other)
  Sender: FDA-Public Use
  Company Number: DE-ACCORD-091216

PATIENT
  Age: 1 Day
  Sex: Male
  Weight: 3.25 kg

DRUGS (4)
  1. METHOTREXATE. [Suspect]
     Active Substance: METHOTREXATE
     Dosage: 15 MGD  ONCE. RECEIVED MTX INSTEAD OF DALTEPARIN
     Route: 064
     Dates: start: 20161022, end: 20161022
  2. DALTEPARIN [Concomitant]
     Active Substance: DALTEPARIN
     Indication: FACTOR V LEIDEN MUTATION
     Route: 064
  3. FOLIC ACID. [Concomitant]
     Active Substance: FOLIC ACID
     Indication: DETOXIFICATION
     Dosage: 5 MG/D
     Route: 064
     Dates: start: 20161022, end: 20161024
  4. PROGESTERONE. [Concomitant]
     Active Substance: PROGESTERONE
     Indication: PROGESTERONE DECREASED
     Dosage: 100 MG/D
     Route: 064
     Dates: start: 20161022, end: 20161023

REACTIONS (3)
  - Foetal exposure during pregnancy [Unknown]
  - Anal atresia [Unknown]
  - Accidental exposure to product [Unknown]

NARRATIVE: CASE EVENT DATE: 20170606
